FAERS Safety Report 25988639 (Version 1)
Quarter: 2025Q4

REPORT INFORMATION
  Report Type: Spontaneous
  Country: US (occurrence: US)
  Receive Date: 20251103
  Receipt Date: 20251103
  Transmission Date: 20260117
  Serious: No
  Sender: RIGEL PHARMACEUTICALS
  Company Number: US-RIGEL Pharmaceuticals, INC-20250800127

PATIENT
  Sex: Male

DRUGS (1)
  1. GAVRETO [Suspect]
     Active Substance: PRALSETINIB
     Indication: Head and neck cancer
     Dosage: 100 MG QD
     Route: 048

REACTIONS (7)
  - Loss of consciousness [Unknown]
  - Orthostatic hypotension [Unknown]
  - Fall [Unknown]
  - Contusion [Recovering/Resolving]
  - Balance disorder [Unknown]
  - Off label use [Unknown]
  - Product prescribing issue [Unknown]
